FAERS Safety Report 10651978 (Version 5)
Quarter: 2015Q3

REPORT INFORMATION
  Report Type: Spontaneous
  Country: JP (occurrence: JP)
  Receive Date: 20141215
  Receipt Date: 20150930
  Transmission Date: 20151125
  Serious: Yes (Death, Life-Threatening, Hospitalization)
  Sender: FDA-Public Use
  Company Number: JP-EISAI MEDICAL RESEARCH-E7389-02790-SPO-JP

PATIENT
  Age: 68 Year
  Sex: Female

DRUGS (21)
  1. LIPITOR [Concomitant]
     Active Substance: ATORVASTATIN CALCIUM
     Indication: HYPERLIPIDAEMIA
     Route: 048
     Dates: start: 20120517
  2. DECADRON [Concomitant]
     Active Substance: DEXAMETHASONE
     Route: 041
     Dates: start: 20120528
  3. GRAN [Concomitant]
     Active Substance: FILGRASTIM
     Dosage: 75 MCG/DAY
     Route: 058
     Dates: start: 20120604
  4. LOXONIN [Concomitant]
     Active Substance: LOXOPROFEN SODIUM
     Dosage: 60 MG/DAY
     Route: 048
     Dates: start: 20120528, end: 20120606
  5. HALAVEN [Suspect]
     Active Substance: ERIBULIN MESYLATE
     Route: 041
     Dates: start: 2013, end: 20130213
  6. EVISTA [Concomitant]
     Active Substance: RALOXIFENE HYDROCHLORIDE
     Indication: OSTEOPOROSIS
     Route: 048
  7. LASIX [Concomitant]
     Active Substance: FUROSEMIDE
     Route: 048
     Dates: end: 20120613
  8. MAXIPIME [Concomitant]
     Active Substance: CEFEPIME HYDROCHLORIDE
     Route: 041
     Dates: start: 20120701
  9. GENTACIN [Concomitant]
     Active Substance: GENTAMICIN SULFATE
     Dosage: UNKNOWN
     Route: 048
     Dates: start: 20120615
  10. HALAVEN [Suspect]
     Active Substance: ERIBULIN MESYLATE
     Indication: BREAST CANCER METASTATIC
     Route: 041
     Dates: start: 20120528, end: 20120528
  11. HALAVEN [Suspect]
     Active Substance: ERIBULIN MESYLATE
     Route: 041
     Dates: start: 20120918
  12. ONEALFA [Concomitant]
     Active Substance: ALFACALCIDOL
     Indication: OSTEOPOROSIS
     Route: 048
  13. LASIX [Concomitant]
     Active Substance: FUROSEMIDE
     Route: 048
     Dates: start: 20120704
  14. GASTER [Concomitant]
     Active Substance: FAMOTIDINE
     Indication: PROPHYLAXIS
     Route: 048
     Dates: start: 20120614
  15. ASPARA-CA [Concomitant]
     Active Substance: CALCIUM ASPARTATE
     Indication: OSTEOPOROSIS
     Route: 048
  16. LASIX [Concomitant]
     Active Substance: FUROSEMIDE
     Route: 048
     Dates: start: 20120614, end: 20120703
  17. SOLON [Concomitant]
     Active Substance: SOFALCONE
     Dosage: 100 MG/DAY
     Route: 048
     Dates: start: 20120507, end: 20120516
  18. SOLON [Concomitant]
     Active Substance: SOFALCONE
     Dosage: 100 MG/DAY
     Route: 048
     Dates: start: 20120528, end: 20120606
  19. HALAVEN [Suspect]
     Active Substance: ERIBULIN MESYLATE
     Route: 041
     Dates: start: 20120606, end: 20120717
  20. AZUNOL [Concomitant]
     Active Substance: SODIUM GUALENATE
     Dosage: UNKNOWN
     Route: 048
     Dates: start: 20120719
  21. ISOTONIC SODIUM CHLORIDE SOLUTION [Concomitant]
     Active Substance: SODIUM CHLORIDE
     Route: 041
     Dates: start: 20120528

REACTIONS (4)
  - Disseminated intravascular coagulation [Recovering/Resolving]
  - Sepsis [Fatal]
  - Leukopenia [Recovered/Resolved]
  - Neutropenia [Not Recovered/Not Resolved]

NARRATIVE: CASE EVENT DATE: 20120604
